FAERS Safety Report 24851916 (Version 1)
Quarter: 2025Q1

REPORT INFORMATION
  Report Type: Spontaneous
  Country: US (occurrence: US)
  Receive Date: 20250116
  Receipt Date: 20250116
  Transmission Date: 20250408
  Serious: No
  Sender: PFIZER
  Company Number: US-PFIZER INC-PV202500006711

PATIENT
  Age: 45 Year
  Sex: Male

DRUGS (4)
  1. ZITHROMAX [Suspect]
     Active Substance: AZITHROMYCIN DIHYDRATE
     Indication: Mycobacterium abscessus infection
  2. LINEZOLID [Suspect]
     Active Substance: LINEZOLID
     Indication: Mycobacterium abscessus infection
  3. TROVAN [Suspect]
     Active Substance: TROVAFLOXACIN MESYLATE
     Indication: Mycobacterium abscessus infection
  4. TROVAFLOXACIN [Suspect]
     Active Substance: TROVAFLOXACIN
     Indication: Mycobacterium abscessus infection

REACTIONS (4)
  - Fatigue [Unknown]
  - Hypersensitivity [Unknown]
  - Pruritus [Unknown]
  - Muscle spasms [Unknown]
